FAERS Safety Report 8219445-7 (Version None)
Quarter: 2012Q1

REPORT INFORMATION
  Report Type: 
  Country: None (occurrence: None)
  Receive Date: 20120319
  Receipt Date: 20120307
  Transmission Date: 20120608
  Serious: Yes (Hospitalization, Disabling, Other)
  Sender: FDA-Public Use
  Company Number: US-ELI_LILLY_AND_COMPANY-US201203002624

PATIENT
  Sex: Female

DRUGS (4)
  1. HUMALOG [Suspect]
     Indication: TYPE 2 DIABETES MELLITUS
     Dosage: 25 U, EACH MORNING
  2. LANTUS [Concomitant]
     Dosage: 20 U, BEFORE BED
  3. HUMALOG [Suspect]
     Dosage: 25 U, EACH EVENING
  4. HUMALOG [Suspect]
     Dosage: 15 U, AT NOON

REACTIONS (16)
  - MALAISE [None]
  - SNEEZING [None]
  - DIZZINESS [None]
  - FEELING HOT [None]
  - DRUG DOSE OMISSION [None]
  - FEELING ABNORMAL [None]
  - PERIPHERAL NERVE OPERATION [None]
  - KNEE ARTHROPLASTY [None]
  - HYPERHIDROSIS [None]
  - COUGH [None]
  - THINKING ABNORMAL [None]
  - HYPERSENSITIVITY [None]
  - GAIT DISTURBANCE [None]
  - EYE ALLERGY [None]
  - DECREASED APPETITE [None]
  - URINARY TRACT INFECTION [None]
